FAERS Safety Report 10698137 (Version 1)
Quarter: 2014Q4

REPORT INFORMATION
  Report Type: Spontaneous
  Country: US (occurrence: None)
  Receive Date: 20141223
  Receipt Date: 20141223
  Transmission Date: 20150529
  Serious: No
  Sender: FDA-Public Use
  Company Number: 1000070940

PATIENT
  Age: 79 Year
  Sex: Female

DRUGS (6)
  1. SYNTHROID [Concomitant]
     Active Substance: LEVOTHYROXINE SODIUM
  2. COZAAR (LOSARTAN POTASSIUM) [Concomitant]
  3. LASIX [Concomitant]
     Active Substance: FUROSEMIDE
  4. OXYGEN (OXYGEN) [Concomitant]
     Active Substance: OXYGEN
  5. LINZESS [Suspect]
     Active Substance: LINACLOTIDE
     Indication: CONSTIPATION
     Dosage: 1 IN 1 D
     Route: 048
     Dates: start: 2014
  6. CLONIDINE (CLONIDINE) [Concomitant]
     Active Substance: CLONIDINE

REACTIONS (1)
  - Drug ineffective [None]

NARRATIVE: CASE EVENT DATE: 2014
